FAERS Safety Report 21873533 (Version 1)
Quarter: 2023Q1

REPORT INFORMATION
  Report Type: Spontaneous
  Country: DE (occurrence: DE)
  Receive Date: 20230117
  Receipt Date: 20230117
  Transmission Date: 20230418
  Serious: Yes (Other)
  Sender: FDA-Public Use
  Company Number: None

PATIENT
  Age: 66 Year
  Sex: Male

DRUGS (12)
  1. SERTRALINE [Suspect]
     Active Substance: SERTRALINE HYDROCHLORIDE
     Indication: Product used for unknown indication
     Dates: start: 20220823, end: 20220830
  2. TRAZODONE HYDROCHLORIDE [Suspect]
     Active Substance: TRAZODONE HYDROCHLORIDE
     Indication: Product used for unknown indication
     Dosage: START BEFORE ADMISSION
     Dates: start: 20220714
  3. CHOLECALCIFEROL [Concomitant]
     Active Substance: CHOLECALCIFEROL
     Dosage: BEFORE ADMISSION - B.A.W.
  4. CANDESARTAN [Concomitant]
     Active Substance: CANDESARTAN
     Dosage: BEFORE ADMISSION - B.A.W.
  5. LITHIUM [Concomitant]
     Active Substance: LITHIUM
     Dosage: B.A.W.
     Dates: start: 20220712, end: 20220901
  6. BISOPROLOL [Concomitant]
     Active Substance: BISOPROLOL
     Dosage: BEFORE ADMISSION - B.A.W.
  7. TRAZODONE HYDROCHLORIDE [Suspect]
     Active Substance: TRAZODONE HYDROCHLORIDE
     Indication: Product used for unknown indication
     Dates: start: 20220715, end: 20220726
  8. TRAZODONE HYDROCHLORIDE [Suspect]
     Active Substance: TRAZODONE HYDROCHLORIDE
     Indication: Product used for unknown indication
     Dates: start: 20220727, end: 20220803
  9. TRAZODONE HYDROCHLORIDE [Suspect]
     Active Substance: TRAZODONE HYDROCHLORIDE
     Indication: Product used for unknown indication
     Dates: start: 20220804
  10. LITHIUM [Concomitant]
     Active Substance: LITHIUM
     Dosage: B.A.W.
     Dates: start: 20220902
  11. SERTRALINE [Suspect]
     Active Substance: SERTRALINE HYDROCHLORIDE
     Indication: Product used for unknown indication
     Dates: start: 20220831, end: 20220905
  12. SERTRALINE [Suspect]
     Active Substance: SERTRALINE HYDROCHLORIDE
     Indication: Product used for unknown indication
     Dates: start: 20220809, end: 20220822

REACTIONS (1)
  - Pollakiuria [Recovering/Resolving]

NARRATIVE: CASE EVENT DATE: 20220809
